FAERS Safety Report 21144239 (Version 1)
Quarter: 2022Q3

REPORT INFORMATION
  Report Type: Spontaneous
  Country: AU (occurrence: AU)
  Receive Date: 20220728
  Receipt Date: 20220728
  Transmission Date: 20221026
  Serious: Yes (Other)
  Sender: FDA-Public Use
  Company Number: AU-MLMSERVICE-20220615-3611402-1

PATIENT
  Age: 17 Year
  Sex: Male

DRUGS (6)
  1. FLUOXETINE HYDROCHLORIDE [Interacting]
     Active Substance: FLUOXETINE HYDROCHLORIDE
     Indication: Product used for unknown indication
     Route: 065
  2. CANNABIDIOL [Interacting]
     Active Substance: CANNABIDIOL
     Indication: Autism spectrum disorder
     Dosage: GRADUAL UP-TITRATION TO TWICE DAILY 18 MG
     Route: 048
  3. CANNABIDIOL [Interacting]
     Active Substance: CANNABIDIOL
     Dosage: GRADUAL UP-TITRATION TO TWICE DAILY 18 MG
     Route: 048
  4. RISPERIDONE [Interacting]
     Active Substance: RISPERIDONE
     Indication: Product used for unknown indication
     Dosage: 0.5 MG, BID
     Route: 065
  5. LORATADINE [Interacting]
     Active Substance: LORATADINE
     Indication: Product used for unknown indication
     Dosage: 10 MG, DAILY
     Route: 065
  6. CLONIDINE [Interacting]
     Active Substance: CLONIDINE
     Indication: Product used for unknown indication
     Route: 065

REACTIONS (10)
  - Drug-genetic interaction [Recovered/Resolved]
  - Obsessive-compulsive disorder [Recovered/Resolved]
  - Drug interaction [Recovered/Resolved]
  - Condition aggravated [Recovered/Resolved]
  - Agitation [Recovered/Resolved]
  - Psychomotor hyperactivity [Recovered/Resolved]
  - Mydriasis [Recovered/Resolved]
  - Insomnia [Recovered/Resolved]
  - Akathisia [Recovered/Resolved]
  - Screaming [Recovered/Resolved]
